FAERS Safety Report 23235225 (Version 2)
Quarter: 2023Q4

REPORT INFORMATION
  Report Type: Spontaneous
  Country: US (occurrence: US)
  Receive Date: 20231128
  Receipt Date: 20231130
  Transmission Date: 20240109
  Serious: Yes (Life-Threatening, Hospitalization)
  Sender: FDA-Public Use
  Company Number: US-PFIZER INC-PV202300189510

PATIENT
  Age: 22 Year
  Sex: Male

DRUGS (4)
  1. HYDROCORTISONE ACETATE [Suspect]
     Active Substance: HYDROCORTISONE ACETATE
     Indication: Thyrotoxic crisis
     Dosage: UNK
  2. PROPRANOLOL HYDROCHLORIDE [Suspect]
     Active Substance: PROPRANOLOL HYDROCHLORIDE
     Indication: Thyrotoxic crisis
     Dosage: UNK
  3. PROPYLTHIOURACIL [Suspect]
     Active Substance: PROPYLTHIOURACIL
     Indication: Thyrotoxic crisis
     Dosage: UNK
  4. LUGOL [Suspect]
     Active Substance: IODINE\POTASSIUM IODIDE
     Indication: Thyrotoxic crisis
     Dosage: UNK

REACTIONS (2)
  - Hypertransaminasaemia [Unknown]
  - Ischaemic hepatitis [Unknown]
